FAERS Safety Report 18046607 (Version 2)
Quarter: 2020Q3

REPORT INFORMATION
  Report Type: Not Available
  Country: US (occurrence: US)
  Receive Date: 20200720
  Receipt Date: 20200909
  Transmission Date: 20201103
  Serious: Yes (Hospitalization)
  Sender: FDA-Public Use
  Company Number: US-NEUROCRINE BIOSCIENCES INC.-2020NBI02455

PATIENT
  Age: 69 Year
  Sex: Female

DRUGS (5)
  1. ZOLPIDEM [Concomitant]
     Active Substance: ZOLPIDEM TARTRATE
     Indication: INSOMNIA
     Dosage: AT BEDTIME; STARTED PRIOR TO 2012
     Route: 048
  2. QUETIAPINE. [Concomitant]
     Active Substance: QUETIAPINE
     Indication: BIPOLAR DISORDER
     Dosage: 100 MG IN THE MORNING AND 400 MG AT BEDTIME
     Route: 048
  3. INGREZZA [Suspect]
     Active Substance: VALBENAZINE
     Indication: TARDIVE DYSKINESIA
     Route: 048
     Dates: start: 20190605
  4. LITHIUM. [Concomitant]
     Active Substance: LITHIUM
     Indication: BIPOLAR DISORDER
     Dosage: IMMEDIATE RELEASE (IR) 150 (NO UNITS PROVIDED) IN THE MORNING; STARTED APPROX. 30 YEARS AGO
     Route: 048
  5. LITHIUM. [Concomitant]
     Active Substance: LITHIUM
     Dosage: EXTENDED RELEASE (ER) 300 (NO UNITS PROVIDED) AT BEDTIME
     Route: 048
     Dates: start: 20190708

REACTIONS (3)
  - Concussion [Recovered/Resolved]
  - Pain [Recovered/Resolved]
  - Fall [Recovered/Resolved]

NARRATIVE: CASE EVENT DATE: 20200110
